FAERS Safety Report 8478016-8 (Version None)
Quarter: 2012Q2

REPORT INFORMATION
  Report Type: 
  Country: None (occurrence: None)
  Receive Date: 20120629
  Receipt Date: 20120621
  Transmission Date: 20120825
  Serious: Yes (Hospitalization)
  Sender: FDA-Public Use
  Company Number: BR-BIOMARINP-002650

PATIENT
  Sex: Female

DRUGS (5)
  1. ANTIBIOTIC [Concomitant]
  2. NAGLAZYME [Suspect]
     Indication: PRODUCT USED FOR UNKNOWN INDICATION
     Route: 041
     Dates: start: 20100519
  3. AMBROXOL [Concomitant]
  4. OXYGEN [Concomitant]
  5. POLARAMINE [Concomitant]
     Indication: PREMEDICATION

REACTIONS (1)
  - PNEUMONIA [None]
